FAERS Safety Report 5975844-5 (Version None)
Quarter: 2008Q4

REPORT INFORMATION
  Report Type: 
  Country: None (occurrence: None)
  Receive Date: 20081202
  Receipt Date: 20081124
  Transmission Date: 20090506
  Serious: Yes (Death)
  Sender: FDA-Public Use
  Company Number: A0751133A

PATIENT
  Age: 72 Year
  Sex: Male

DRUGS (2)
  1. REQUIP XL [Suspect]
     Indication: PARKINSON'S DISEASE
     Dosage: 2MG UNKNOWN
     Route: 065
     Dates: start: 20080808
  2. STALEVO 100 [Concomitant]
     Route: 048
     Dates: start: 20080701

REACTIONS (1)
  - COMPLETED SUICIDE [None]
